FAERS Safety Report 7645669-3 (Version None)
Quarter: 2011Q3

REPORT INFORMATION
  Report Type: 
  Country: None (occurrence: None)
  Receive Date: 20110729
  Receipt Date: 20110727
  Transmission Date: 20111222
  Serious: No
  Sender: FDA-Public Use
  Company Number: US-PFIZER INC-2011171809

PATIENT
  Sex: Male
  Weight: 126.98 kg

DRUGS (6)
  1. CAVERJECT [Suspect]
     Indication: ERECTILE DYSFUNCTION
     Dosage: 3 UG, AS NEEDED
  2. TEMAZEPAM [Concomitant]
     Indication: SLEEP DISORDER
     Dosage: UNK
  3. SULAR [Concomitant]
     Indication: HYPERTENSION
     Dosage: UNK
  4. CLONAZEPAM [Concomitant]
     Indication: ANXIETY
     Dosage: UNK
  5. VITAMIN D [Concomitant]
     Dosage: UNK
  6. LISINOPRIL [Concomitant]
     Indication: HYPERTENSION
     Dosage: UNK

REACTIONS (2)
  - DRUG EFFECT DECREASED [None]
  - PRODUCT DEPOSIT [None]
